FAERS Safety Report 13038521 (Version 2)
Quarter: 2017Q1

REPORT INFORMATION
  Report Type: Spontaneous
  Country: US (occurrence: US)
  Receive Date: 20161219
  Receipt Date: 20170220
  Transmission Date: 20170428
  Serious: No
  Sender: FDA-Public Use
  Company Number: US-009507513-1612USA008992

PATIENT
  Sex: Female

DRUGS (2)
  1. REMERON [Suspect]
     Active Substance: MIRTAZAPINE
     Indication: GASTRIC DISORDER
     Dosage: UP TO 45MGS, PRN
     Route: 048
  2. REMERON [Suspect]
     Active Substance: MIRTAZAPINE
     Dosage: UNK, 15MGS
     Route: 048

REACTIONS (5)
  - Asthma [Unknown]
  - Weight increased [Unknown]
  - Rash [Recovered/Resolved]
  - Hypersensitivity [Unknown]
  - Blister [Unknown]
